FAERS Safety Report 23648843 (Version 1)
Quarter: 2024Q1

REPORT INFORMATION
  Report Type: Spontaneous
  Country: US (occurrence: None)
  Receive Date: 20240318
  Receipt Date: 20240318
  Transmission Date: 20240410
  Serious: Yes (unspecified)
  Sender: FDA-Public Use
  Company Number: None

PATIENT
  Age: 33 Year
  Sex: Male
  Weight: 117 kg

DRUGS (1)
  1. BELBUCA [Suspect]
     Active Substance: BUPRENORPHINE HYDROCHLORIDE
     Indication: Pain
     Dosage: OTHER QUANTITY : 1 BULICAL FILM;?FREQUENCY : EVERY 12 HOURS;?OTHER ROUTE : APPLIED FILM TO INSIDE OF
     Route: 050

REACTIONS (2)
  - Dental caries [None]
  - Application site reaction [None]

NARRATIVE: CASE EVENT DATE: 20240317
